FAERS Safety Report 7762144-6 (Version None)
Quarter: 2011Q3

REPORT INFORMATION
  Report Type: 
  Country: None (occurrence: None)
  Receive Date: 20110919
  Receipt Date: 20110919
  Transmission Date: 20111222
  Serious: Yes (Hospitalization)
  Sender: FDA-Public Use
  Company Number: None

PATIENT
  Sex: Female
  Weight: 65.01 kg

DRUGS (20)
  1. CISPLATIN [Suspect]
     Dosage: 128 MG
  2. ALCLOMETASONE TOPICAL [Concomitant]
  3. FILGRASTIM [Concomitant]
  4. LOPERAMIDE HCL [Concomitant]
  5. LORAZEPAM [Concomitant]
  6. SODIUM CHLORIDE INJ [Concomitant]
  7. STOMATITIS COCKTAIL [Concomitant]
  8. POTASSIUM CHLORIDE [Concomitant]
  9. FLUOROURACIL [Suspect]
     Dosage: 6840 MG
  10. CEFEPIME [Concomitant]
  11. AMOXICILLIN [Concomitant]
  12. CITALOPRAM HYDROBROMIDE [Concomitant]
  13. ESOMEPRAZOLE SODIUM [Concomitant]
  14. METOCLOPRAMIDE [Concomitant]
  15. DOCUSATE-SENNA [Concomitant]
  16. MORPHINE [Concomitant]
  17. ONDANSETRON [Concomitant]
  18. ERBITUX [Suspect]
     Dosage: 1544 MG
  19. ACETAMINOPHEN [Concomitant]
  20. DALTEPARIN SODIUM [Concomitant]

REACTIONS (13)
  - NAUSEA [None]
  - DECREASED APPETITE [None]
  - MIDDLE INSOMNIA [None]
  - MUCOSAL INFLAMMATION [None]
  - DIARRHOEA [None]
  - FREQUENT BOWEL MOVEMENTS [None]
  - FATIGUE [None]
  - ELECTROLYTE IMBALANCE [None]
  - PERFORMANCE STATUS DECREASED [None]
  - GLOSSITIS [None]
  - STOMATITIS [None]
  - NEUTROPENIA [None]
  - OROPHARYNGEAL PAIN [None]
